FAERS Safety Report 9218003 (Version 2)
Quarter: 2013Q2

REPORT INFORMATION
  Report Type: Spontaneous
  Country: US (occurrence: US)
  Receive Date: 20130408
  Receipt Date: 20130516
  Transmission Date: 20140414
  Serious: Yes (Other)
  Sender: FDA-Public Use
  Company Number: US-UCBSA-082243

PATIENT
  Age: 57 Year
  Sex: Female
  Weight: 113.4 kg

DRUGS (7)
  1. CIMZIA [Suspect]
     Indication: PSORIATIC ARTHROPATHY
     Dates: start: 20130218, end: 20130418
  2. CIMZIA [Suspect]
     Dates: start: 20130218, end: 20130418
  3. PREDNISONE [Concomitant]
     Indication: PSORIATIC ARTHROPATHY
     Dates: start: 20130115
  4. NEXIUM [Concomitant]
     Indication: GASTROOESOPHAGEAL REFLUX DISEASE
  5. METFORMIN HCL [Concomitant]
     Indication: DIABETES MELLITUS
  6. BUPROPION [Concomitant]
     Indication: ANXIETY
  7. LEVOTHYROXINE [Concomitant]
     Indication: THYROID DISORDER

REACTIONS (2)
  - Psoriatic arthropathy [Recovered/Resolved]
  - Drug ineffective for unapproved indication [Recovered/Resolved]
